FAERS Safety Report 21669196 (Version 2)
Quarter: 2023Q2

REPORT INFORMATION
  Report Type: Report from Study
  Country: FR (occurrence: FR)
  Receive Date: 20221201
  Receipt Date: 20230516
  Transmission Date: 20230722
  Serious: Yes (Life-Threatening)
  Sender: FDA-Public Use
  Company Number: FR-SA-SAC20221129000948

PATIENT
  Age: 71 Year
  Sex: Male
  Weight: 56 kg

DRUGS (8)
  1. ISATUXIMAB [Suspect]
     Active Substance: ISATUXIMAB
     Indication: Plasma cell myeloma
     Dosage: 550 MG
     Dates: start: 20220331, end: 20220331
  2. ISATUXIMAB [Suspect]
     Active Substance: ISATUXIMAB
     Dosage: 540 MG
     Dates: start: 20220215, end: 20220215
  3. LENALIDOMIDE [Suspect]
     Active Substance: LENALIDOMIDE
     Indication: Plasma cell myeloma
     Dosage: 25 MG
     Dates: start: 20220406, end: 20220406
  4. LENALIDOMIDE [Suspect]
     Active Substance: LENALIDOMIDE
     Dosage: 25 MG
     Route: 065
     Dates: start: 20220215, end: 20220215
  5. BORTEZOMIB [Suspect]
     Active Substance: BORTEZOMIB
     Indication: Plasma cell myeloma
     Dosage: 2.25 MG
     Dates: start: 20220331, end: 20220331
  6. BORTEZOMIB [Suspect]
     Active Substance: BORTEZOMIB
     Dosage: 2.10 MG
     Dates: start: 20220215, end: 20220215
  7. DEXAMETHASONE [Concomitant]
     Active Substance: DEXAMETHASONE
     Indication: Plasma cell myeloma
     Dosage: 20 MG
     Dates: start: 20220407, end: 20220407
  8. DEXAMETHASONE [Concomitant]
     Active Substance: DEXAMETHASONE
     Dosage: 20 MG
     Dates: start: 20220215, end: 20220215

REACTIONS (1)
  - Lymphopenia [Recovered/Resolved]

NARRATIVE: CASE EVENT DATE: 20220414
